FAERS Safety Report 5972909-9 (Version None)
Quarter: 2008Q4

REPORT INFORMATION
  Report Type: 
  Country: None (occurrence: None)
  Receive Date: 20081201
  Receipt Date: 20081119
  Transmission Date: 20090506
  Serious: Yes (Hospitalization)
  Sender: FDA-Public Use
  Company Number: PHHY2008JP29111

PATIENT
  Sex: Male

DRUGS (13)
  1. ICL670A ICL+DISTAB [Suspect]
     Indication: IRON OVERLOAD
     Dosage: 500 MG/DAY
     Route: 048
     Dates: start: 20081113, end: 20081115
  2. CONTOMIN [Concomitant]
     Dosage: 20 MG/DAY
     Route: 048
     Dates: start: 20081030, end: 20081112
  3. GLAKAY [Concomitant]
     Dosage: 3 DF/DAY
     Route: 048
     Dates: start: 20081030, end: 20081112
  4. PRIMOBOLAN [Concomitant]
     Dosage: 3 DF/DAY
     Route: 048
     Dates: start: 20081030, end: 20081112
  5. RABEPRAZOLE SODIUM [Concomitant]
     Dosage: 1 DF/DAY
     Route: 048
     Dates: start: 20081030, end: 20081112
  6. RHYTHMY [Concomitant]
     Dosage: 1 DF/DAY
     Route: 048
     Dates: start: 20081030, end: 20081112
  7. NEORAL [Concomitant]
     Dosage: 4 DF/DAY
     Route: 048
     Dates: start: 20081030, end: 20081112
  8. LASIX [Concomitant]
     Dosage: 0.5 DF
     Route: 048
     Dates: start: 20080906, end: 20081112
  9. LASIX [Concomitant]
     Dosage: 1DF/DAY
     Route: 048
  10. OPALMON [Concomitant]
     Dosage: 3 DF/DAY
     Route: 048
     Dates: start: 20081030, end: 20081112
  11. PENTAZOCINE LACTATE [Concomitant]
     Dosage: 1 DF/DAY
     Route: 048
     Dates: start: 20081030, end: 20081112
  12. KETOPROFEN [Concomitant]
     Dosage: UNK
     Route: 061
     Dates: start: 20081030, end: 20081112
  13. NIZORAL [Concomitant]
     Dosage: UNK
     Route: 061
     Dates: start: 20081030, end: 20081112

REACTIONS (4)
  - ASTHENIA [None]
  - FALL [None]
  - PLATELET COUNT DECREASED [None]
  - SOMNOLENCE [None]
